FAERS Safety Report 4665746-9 (Version None)
Quarter: 2005Q2

REPORT INFORMATION
  Report Type: 
  Country: None (occurrence: None)
  Receive Date: 20050517
  Receipt Date: 20050502
  Transmission Date: 20051028
  Serious: Yes (Hospitalization, Other)
  Sender: FDA-Public Use
  Company Number: US_0505116938

PATIENT
  Age: 65 Year
  Sex: Female
  Weight: 57 kg

DRUGS (4)
  1. CYMBALTA [Suspect]
     Indication: DEPRESSION
     Dosage: 60 MG
     Dates: start: 20050115, end: 20050116
  2. REMERON (MIRTAZAPINE ORIFARM) [Concomitant]
  3. EXELON [Concomitant]
  4. CHINESE MEDICINE [Concomitant]

REACTIONS (4)
  - BLOOD GLUCOSE INCREASED [None]
  - GRAND MAL CONVULSION [None]
  - OBSESSIVE-COMPULSIVE DISORDER [None]
  - WHITE BLOOD CELL COUNT INCREASED [None]
